FAERS Safety Report 20363799 (Version 2)
Quarter: 2022Q1

REPORT INFORMATION
  Report Type: Spontaneous
  Country: BR (occurrence: BR)
  Receive Date: 20220121
  Receipt Date: 20220302
  Transmission Date: 20220424
  Serious: No
  Sender: FDA-Public Use
  Company Number: BR-Santen Inc-2022-BRA-000288

PATIENT
  Age: 85 Year
  Sex: Female

DRUGS (4)
  1. FLUOROMETHOLONE ACETATE [Suspect]
     Active Substance: FLUOROMETHOLONE ACETATE
     Indication: Product used for unknown indication
     Dosage: 2 DRP IN EACH EYE, QD
     Route: 047
     Dates: start: 202201
  2. INSULIN REGULAR (INSULIN PORCINE) SOLUTION FOR INJECTION [Concomitant]
     Indication: Product used for unknown indication
  3. INSULIN HUMAN (INSULIN HUMAN) SOLUTION FOR INJECTION [Concomitant]
     Indication: Product used for unknown indication
  4. DAFLON [Concomitant]
     Indication: Product used for unknown indication

REACTIONS (1)
  - Gait disturbance [Unknown]
